FAERS Safety Report 18496308 (Version 3)
Quarter: 2020Q4

REPORT INFORMATION
  Report Type: Spontaneous
  Country: JP (occurrence: JP)
  Receive Date: 20201112
  Receipt Date: 20201231
  Transmission Date: 20210114
  Serious: Yes (Other)
  Sender: FDA-Public Use
  Company Number: JP-ABBVIE-20K-087-3648720-00

PATIENT
  Age: 64 Year
  Sex: Male
  Weight: 85.3 kg

DRUGS (11)
  1. BETAMETHASONE BUTYRATE PROPIONATE [Concomitant]
     Active Substance: BETAMETHASONE BUTYRATE PROPIONATE
     Indication: PSORIASIS
     Dosage: ABOUT 30 G/MONTH
     Route: 061
     Dates: start: 20170418, end: 201712
  2. HUMIRA [Suspect]
     Active Substance: ADALIMUMAB
     Route: 058
     Dates: start: 20190115, end: 20190701
  3. MAXACALCITOL [Concomitant]
     Active Substance: MAXACALCITOL
     Indication: PSORIASIS
     Dosage: ABOUT 30 G/MONTH
     Route: 061
     Dates: start: 20170418
  4. HUMIRA [Suspect]
     Active Substance: ADALIMUMAB
     Indication: PSORIATIC ARTHROPATHY
     Route: 058
     Dates: start: 20170801, end: 20190114
  5. TREMFYA [Suspect]
     Active Substance: GUSELKUMAB
     Indication: PSORIATIC ARTHROPATHY
     Route: 065
     Dates: start: 201907, end: 2019
  6. EPINASTINE HYDROCHLORIDE. [Concomitant]
     Active Substance: EPINASTINE HYDROCHLORIDE
     Indication: PSORIASIS
     Route: 048
     Dates: start: 20170418, end: 20171024
  7. BETAMETHASONE BUTYRATE PROPIONATE;MAXACALCITOL [Concomitant]
     Indication: PSORIASIS
     Dosage: ABOUT 100 G/MONTH
     Route: 061
     Dates: start: 20170418
  8. HUMIRA [Suspect]
     Active Substance: ADALIMUMAB
     Indication: PSORIASIS
     Route: 058
     Dates: start: 20170718, end: 20170731
  9. HEPARINOID [Concomitant]
     Active Substance: CHONDROITIN SULFATE (BOVINE)
     Indication: PSORIASIS
     Dosage: ABOUT 100 G/MONTH
     Route: 061
     Dates: start: 20170418
  10. TREMFYA [Suspect]
     Active Substance: GUSELKUMAB
     Route: 065
     Dates: start: 202002
  11. TACROLIMUS MONOHYDRATE [Concomitant]
     Active Substance: TACROLIMUS
     Indication: PSORIASIS
     Dosage: ABOUT 10 G/MONTH
     Route: 061
     Dates: start: 20170418

REACTIONS (2)
  - Antinuclear antibody increased [Recovered/Resolved]
  - Keratoacanthoma [Recovered/Resolved]

NARRATIVE: CASE EVENT DATE: 20190618
